FAERS Safety Report 6010909-3 (Version None)
Quarter: 2008Q4

REPORT INFORMATION
  Report Type: 
  Country: None (occurrence: None)
  Receive Date: 20081216
  Receipt Date: 20081203
  Transmission Date: 20090506
  Serious: Yes (Hospitalization)
  Sender: FDA-Public Use
  Company Number: 08H-163-0315304-00

PATIENT
  Age: 27 Year
  Sex: Female
  Weight: 124 kg

DRUGS (4)
  1. PRECEDEX [Suspect]
     Indication: SEDATION
     Dosage: 1000MCG IN 250CC NS, CONTINUOUS, INTRAVENOUS
     Route: 042
     Dates: start: 20081201, end: 20081201
  2. MORPHINE [Concomitant]
  3. NARCAN [Concomitant]
  4. SODIUM CHLORIDE [Concomitant]

REACTIONS (4)
  - ANAEMIA [None]
  - BLOOD PRESSURE DECREASED [None]
  - HAEMORRHAGE [None]
  - OLIGURIA [None]
